FAERS Safety Report 8232019-7 (Version None)
Quarter: 2012Q1

REPORT INFORMATION
  Report Type: 
  Country: None (occurrence: None)
  Receive Date: 20120323
  Receipt Date: 20120314
  Transmission Date: 20120608
  Serious: Yes (Hospitalization)
  Sender: FDA-Public Use
  Company Number: JP-JNJFOC-20120309180

PATIENT
  Age: 33 Year
  Sex: Female

DRUGS (9)
  1. PAROXETINE HCL [Suspect]
     Indication: DEPRESSION
     Route: 065
  2. PAROXETINE HCL [Suspect]
     Indication: PANIC ATTACK
     Route: 065
  3. PHENOBARBITAL TAB [Suspect]
     Indication: PRODUCT USED FOR UNKNOWN INDICATION
     Route: 065
  4. CHLORPROMAZINE+PROMETHAZINE COMBINED [Concomitant]
     Route: 065
  5. RISPERDAL [Suspect]
     Indication: PRODUCT USED FOR UNKNOWN INDICATION
     Route: 048
  6. ETHYL LOFLAZEPATE [Suspect]
     Indication: DEPRESSION
     Route: 065
  7. ETHYL LOFLAZEPATE [Suspect]
     Indication: PANIC ATTACK
     Route: 065
  8. FLUNITRAZEPAM [Suspect]
     Indication: PRODUCT USED FOR UNKNOWN INDICATION
     Route: 065
  9. VALPROATE SODIUM [Suspect]
     Indication: PRODUCT USED FOR UNKNOWN INDICATION
     Route: 065

REACTIONS (3)
  - SUICIDE ATTEMPT [None]
  - SLEEP APNOEA SYNDROME [None]
  - WEIGHT INCREASED [None]
